FAERS Safety Report 12383410 (Version 1)
Quarter: 2016Q2

REPORT INFORMATION
  Report Type: Spontaneous
  Country: US (occurrence: US)
  Receive Date: 20160518
  Receipt Date: 20160518
  Transmission Date: 20160815
  Serious: Yes (Hospitalization)
  Sender: FDA-Public Use
  Company Number: US-RELYPSA-RLY2016000675

PATIENT

DRUGS (11)
  1. VELTASSA [Suspect]
     Active Substance: PATIROMER
     Indication: HYPERKALAEMIA
     Dosage: 8.4 G, QD
     Route: 048
     Dates: start: 201604, end: 20160501
  2. SPIRONOLACTONE. [Concomitant]
     Active Substance: SPIRONOLACTONE
  3. COUMADIN [Concomitant]
     Active Substance: WARFARIN SODIUM
  4. LASIX [Concomitant]
     Active Substance: FUROSEMIDE
  5. MILRINONE [Concomitant]
     Active Substance: MILRINONE
  6. CELEXA [Concomitant]
     Active Substance: CITALOPRAM HYDROBROMIDE
  7. TEMAZEPAM. [Concomitant]
     Active Substance: TEMAZEPAM
  8. TIKOSYN [Concomitant]
     Active Substance: DOFETILIDE
  9. BISOPROLOL FUMARATE. [Concomitant]
     Active Substance: BISOPROLOL FUMARATE
  10. DEXTROSE. [Concomitant]
     Active Substance: DEXTROSE
  11. GABAPENTIN. [Concomitant]
     Active Substance: GABAPENTIN

REACTIONS (1)
  - Heart transplant [Unknown]

NARRATIVE: CASE EVENT DATE: 20160502
